FAERS Safety Report 25492502 (Version 1)
Quarter: 2025Q2

REPORT INFORMATION
  Report Type: Report from Study
  Country: CA (occurrence: CA)
  Receive Date: 20250630
  Receipt Date: 20250630
  Transmission Date: 20250716
  Serious: Yes (Other)
  Sender: TAKEDA
  Company Number: CA-TAKEDA-2025TUS058516

PATIENT
  Sex: Female

DRUGS (5)
  1. VEDOLIZUMAB [Suspect]
     Active Substance: VEDOLIZUMAB
     Indication: Colitis ulcerative
  2. VEDOLIZUMAB [Suspect]
     Active Substance: VEDOLIZUMAB
     Dosage: 300 MILLIGRAM, Q4WEEKS
     Dates: start: 20230929
  3. VITAMIN D3 [Concomitant]
     Active Substance: CHOLECALCIFEROL
  4. AZATHIOPRINE [Concomitant]
     Active Substance: AZATHIOPRINE
  5. ALPRAZOLAM [Concomitant]
     Active Substance: ALPRAZOLAM

REACTIONS (1)
  - Cataract [Unknown]
